FAERS Safety Report 6991798-7 (Version None)
Quarter: 2010Q3

REPORT INFORMATION
  Report Type: 
  Country: None (occurrence: None)
  Receive Date: 20100917
  Receipt Date: 20100907
  Transmission Date: 20110219
  Serious: Yes (Other)
  Sender: FDA-Public Use
  Company Number: US-PFIZER INC-2010108720

PATIENT
  Sex: Female

DRUGS (3)
  1. ZOLOFT [Suspect]
     Indication: DEPRESSED MOOD
     Dosage: 100 MG, UNK
  2. ZOLOFT [Suspect]
     Dosage: 200 MG, UNK
  3. PRISTIQ [Suspect]
     Dosage: UNK

REACTIONS (5)
  - DEPRESSION [None]
  - DIARRHOEA [None]
  - FEELING ABNORMAL [None]
  - NERVOUSNESS [None]
  - PHOBIA [None]
